FAERS Safety Report 5712891-2 (Version None)
Quarter: 2008Q2

REPORT INFORMATION
  Report Type: 
  Country: None (occurrence: None)
  Receive Date: 20080422
  Receipt Date: 20080416
  Transmission Date: 20081010
  Serious: Yes (Death, Life-Threatening, Hospitalization)
  Sender: FDA-Public Use
  Company Number: B0517658A

PATIENT
  Age: 60 Year
  Sex: Female
  Weight: 51 kg

DRUGS (3)
  1. ALBENDAZOLE [Suspect]
     Indication: FILARIASIS LYMPHATIC
     Dosage: 400MG SINGLE DOSE
     Route: 048
     Dates: start: 20070616, end: 20070616
  2. DIETHYLCARBAMAZINE CITRATE [Suspect]
     Indication: FILARIASIS LYMPHATIC
     Dosage: 300MG SINGLE DOSE
     Route: 048
     Dates: start: 20070616, end: 20070616
  3. ANTI HYPERTENSIVE [Concomitant]

REACTIONS (8)
  - ALTERED STATE OF CONSCIOUSNESS [None]
  - CONVULSION [None]
  - DIZZINESS [None]
  - ENCEPHALITIS [None]
  - PNEUMONIA ASPIRATION [None]
  - PYREXIA [None]
  - STATUS EPILEPTICUS [None]
  - VOMITING [None]
